FAERS Safety Report 25039352 (Version 2)
Quarter: 2025Q1

REPORT INFORMATION
  Report Type: Spontaneous
  Country: US (occurrence: US)
  Receive Date: 20250305
  Receipt Date: 20250318
  Transmission Date: 20250408
  Serious: No
  Sender: CIPLA
  Company Number: US-CIPLA LTD.-2025US02457

PATIENT

DRUGS (2)
  1. BUDESONIDE [Suspect]
     Active Substance: BUDESONIDE
     Indication: Chronic obstructive pulmonary disease
     Route: 065
  2. BUDESONIDE [Suspect]
     Active Substance: BUDESONIDE
     Route: 065
     Dates: start: 20250214

REACTIONS (5)
  - Product with quality issue administered [Unknown]
  - Liquid product physical issue [Unknown]
  - Product colour issue [Unknown]
  - Product quality issue [Unknown]
  - Product contamination physical [Unknown]

NARRATIVE: CASE EVENT DATE: 20250214
